FAERS Safety Report 11708349 (Version 1)
Quarter: 2015Q4

REPORT INFORMATION
  Report Type: Spontaneous
  Country: US (occurrence: US)
  Receive Date: 20151107
  Receipt Date: 20151107
  Transmission Date: 20160304
  Serious: No
  Sender: FDA-Public Use
  Company Number: US-CELGENEUS-USA-2015105751

PATIENT
  Age: 60 Year
  Sex: Female

DRUGS (1)
  1. OTEZLA [Suspect]
     Active Substance: APREMILAST
     Indication: PSORIATIC ARTHROPATHY
     Dosage: 60 MILLIGRAM
     Route: 048
     Dates: start: 20150816

REACTIONS (5)
  - Abdominal discomfort [Unknown]
  - Pruritus generalised [Unknown]
  - Muscle spasms [Unknown]
  - Psoriasis [Unknown]
  - Dyspepsia [Unknown]

NARRATIVE: CASE EVENT DATE: 20150816
